FAERS Safety Report 10748185 (Version 1)
Quarter: 2015Q1

REPORT INFORMATION
  Report Type: Spontaneous
  Country: US (occurrence: US)
  Receive Date: 20150129
  Receipt Date: 20150129
  Transmission Date: 20150721
  Serious: Yes (Other)
  Sender: FDA-Public Use
  Company Number: US-ELI_LILLY_AND_COMPANY-US201501007910

PATIENT
  Age: 83 Year
  Sex: Male
  Weight: 60.32 kg

DRUGS (6)
  1. FLOMAX [Concomitant]
     Active Substance: TAMSULOSIN HYDROCHLORIDE
  2. LOSARTAN [Concomitant]
     Active Substance: LOSARTAN
     Indication: BLOOD PRESSURE
  3. EFFIENT [Suspect]
     Active Substance: PRASUGREL HYDROCHLORIDE
     Indication: STENT PLACEMENT
     Dosage: UNK, QD
     Route: 065
     Dates: start: 201403
  4. OMEPRAZOLE. [Concomitant]
     Active Substance: OMEPRAZOLE
  5. ASPIRIN                            /00002701/ [Concomitant]
     Active Substance: ASPIRIN
     Dosage: 81 MG, UNK
  6. FOSAMAX [Concomitant]
     Active Substance: ALENDRONATE SODIUM

REACTIONS (4)
  - Squamous cell carcinoma of skin [Unknown]
  - Dyspnoea [Not Recovered/Not Resolved]
  - Anaemia [Not Recovered/Not Resolved]
  - Headache [Not Recovered/Not Resolved]
